FAERS Safety Report 9783438 (Version 1)
Quarter: 2013Q4

REPORT INFORMATION
  Report Type: Spontaneous
  Country: US (occurrence: None)
  Receive Date: 20131223
  Receipt Date: 20131223
  Transmission Date: 20140711
  Serious: Yes (Hospitalization)
  Sender: FDA-Public Use
  Company Number: B0953374A

PATIENT
  Age: 58 Year
  Sex: Female

DRUGS (4)
  1. SALBUTAMOL SULPHATE [Suspect]
     Indication: DYSPNOEA
     Dosage: TWENTY FOUR TIMES PER DAY
  2. FLUTICASONE PROPIONATE [Concomitant]
  3. CITALOPRAM [Concomitant]
  4. SIMVASTATIN [Concomitant]

REACTIONS (5)
  - Chest discomfort [None]
  - Orthopnoea [None]
  - Sinus tachycardia [None]
  - Pulmonary oedema [None]
  - Troponin increased [None]
